FAERS Safety Report 10418182 (Version 1)
Quarter: 2014Q2

REPORT INFORMATION
  Report Type: Spontaneous
  Country: US (occurrence: None)
  Receive Date: 20140613
  Receipt Date: 20140613
  Transmission Date: 20141212
  Serious: Yes (Hospitalization)
  Sender: FDA-Public Use
  Company Number: 115963

PATIENT
  Age: 67 Year
  Sex: Male
  Weight: 77.6 kg

DRUGS (4)
  1. ROTIGOTINE [Suspect]
     Indication: PARKINSON^S DISEASE
     Dates: start: 201312
  2. SINEMET [Concomitant]
  3. ARICEPT [Concomitant]
  4. DEPAKOTE [Concomitant]

REACTIONS (1)
  - Orthostatic hypotension [None]
